FAERS Safety Report 15677937 (Version 2)
Quarter: 2019Q1

REPORT INFORMATION
  Report Type: Spontaneous
  Country: EG (occurrence: EG)
  Receive Date: 20181130
  Receipt Date: 20190109
  Transmission Date: 20190417
  Serious: Yes (Hospitalization, Other)
  Sender: FDA-Public Use
  Company Number: EG-NOVOPROD-635221

PATIENT
  Age: 53 Year
  Sex: Female
  Weight: 90 kg

DRUGS (5)
  1. PLAVIX [Concomitant]
     Active Substance: CLOPIDOGREL BISULFATE
     Indication: HYPERTENSION
     Dosage: ONCE DAILY
     Route: 048
  2. ACTRAPID [Suspect]
     Active Substance: INSULIN HUMAN
     Indication: DIABETES MELLITUS
     Dosage: 36 U QD(STARTED 4 YEARS AGO)
     Route: 058
  3. ACTRAPID [Suspect]
     Active Substance: INSULIN HUMAN
     Dosage: DOSE INCREASED
     Route: 058
  4. CONCOR [Concomitant]
     Active Substance: BISOPROLOL FUMARATE
     Indication: HYPERTENSION
     Dosage: UNK
     Route: 048
  5. LANTUS [Concomitant]
     Active Substance: INSULIN GLARGINE
     Indication: DIABETES MELLITUS
     Dosage: 40 U , FROM 5 YEARS
     Route: 058

REACTIONS (2)
  - Retinal haemorrhage [Not Recovered/Not Resolved]
  - Hyperglycaemia [Not Recovered/Not Resolved]
